FAERS Safety Report 4991059-1 (Version None)
Quarter: 2006Q2

REPORT INFORMATION
  Report Type: 
  Country: None (occurrence: None)
  Receive Date: 20060428
  Receipt Date: 20060419
  Transmission Date: 20061013
  Serious: Yes (Hospitalization)
  Sender: FDA-Public Use
  Company Number: B0421428A

PATIENT
  Age: 21 Year
  Sex: Male

DRUGS (4)
  1. LITHIUM CARBONATE [Suspect]
     Indication: BIPOLAR I DISORDER
  2. HALOPERIDOL [Concomitant]
  3. BIPERIDEN HYDROCHLORIDE TAB [Concomitant]
  4. CHLORPROMAZINE HCL [Concomitant]

REACTIONS (4)
  - DRUG INEFFECTIVE [None]
  - DYSPHAGIA [None]
  - PALATAL OEDEMA [None]
  - PHARYNGOLARYNGEAL PAIN [None]
